FAERS Safety Report 6479885-3 (Version None)
Quarter: 2009Q4

REPORT INFORMATION
  Report Type: 
  Country: None (occurrence: None)
  Receive Date: 20091208
  Receipt Date: 20091113
  Transmission Date: 20100525
  Serious: Yes (Death)
  Sender: FDA-Public Use
  Company Number: JP-SANOFI-AVENTIS-200912773JP

PATIENT
  Age: 68 Year
  Sex: Female
  Weight: 33.6 kg

DRUGS (9)
  1. DOCETAXEL [Suspect]
     Indication: GASTRIC CANCER RECURRENT
     Route: 041
     Dates: start: 20090915, end: 20090915
  2. TS-1 [Concomitant]
     Dates: start: 20081028, end: 20090914
  3. CISPLATIN [Concomitant]
     Dates: start: 20081028, end: 20090914
  4. PHYSIO 35 [Concomitant]
     Indication: FLUID REPLACEMENT
     Route: 042
     Dates: start: 20090901, end: 20090918
  5. DOPAMINE HCL [Concomitant]
     Indication: BLOOD PRESSURE DECREASED
     Route: 041
     Dates: start: 20090920, end: 20090920
  6. MORPHINE [Concomitant]
     Indication: PAIN
     Route: 041
     Dates: start: 20090920, end: 20090920
  7. SULPERAZON [Concomitant]
     Indication: INFECTION
     Route: 042
     Dates: start: 20090920, end: 20090920
  8. DECADRON PHOSPHATE [Concomitant]
     Indication: PREMEDICATION
     Dates: start: 20090915, end: 20090915
  9. KYTRIL [Concomitant]
     Indication: PREMEDICATION
     Dates: start: 20090915, end: 20090915

REACTIONS (1)
  - NEUTROPENIA [None]
